FAERS Safety Report 4600064-6 (Version None)
Quarter: 2005Q1

REPORT INFORMATION
  Report Type: 
  Country: None (occurrence: None)
  Receive Date: 20050307
  Receipt Date: 20020730
  Transmission Date: 20050727
  Serious: Yes (Death)
  Sender: FDA-Public Use
  Company Number: US-BRISTOL-MYERS SQUIBB COMPANY-11971751

PATIENT
  Age: 65 Year
  Sex: Male
  Weight: 74 kg

DRUGS (3)
  1. CISPLATIN [Suspect]
     Indication: BLADDER CANCER
     Dates: start: 20020503, end: 20020711
  2. PACLITAXEL [Suspect]
     Indication: BLADDER CANCER
     Dates: start: 20020503, end: 20020711
  3. GEMCITABINE [Suspect]
     Indication: BLADDER CANCER
     Dates: start: 20020503, end: 20020711

REACTIONS (2)
  - DEATH [None]
  - PNEUMONIA [None]
